FAERS Safety Report 5507892-3 (Version None)
Quarter: 2007Q4

REPORT INFORMATION
  Report Type: 
  Country: None (occurrence: None)
  Receive Date: 20071106
  Receipt Date: 20071026
  Transmission Date: 20080405
  Serious: Yes (Other)
  Sender: FDA-Public Use
  Company Number: CH-ROCHE-527848

PATIENT
  Age: 56 Year
  Sex: Female

DRUGS (4)
  1. BONIVA [Suspect]
     Indication: OSTEOPOROSIS
     Dosage: DOSING AMOUNT: LESS THAN 1 ML. MALADMINISTRATION.
     Route: 050
     Dates: start: 20071022, end: 20071022
  2. BONIVA [Suspect]
     Dosage: A SMALL PART OF THE INJECTION GIVEN PARAVENOUSLY.
     Route: 042
     Dates: start: 20071022, end: 20071022
  3. BONIVA [Suspect]
     Route: 042
     Dates: start: 20070101
  4. ANTIEPILEPTIC [Concomitant]
     Indication: EPILEPSY
     Dosage: DRUG NAME: ANTIEPILEPTICS

REACTIONS (3)
  - DRUG ADMINISTRATION ERROR [None]
  - INJECTION SITE REACTION [None]
  - THROMBOPHLEBITIS [None]
